FAERS Safety Report 23552207 (Version 4)
Quarter: 2024Q1

REPORT INFORMATION
  Report Type: Spontaneous
  Country: FR (occurrence: FR)
  Receive Date: 20240222
  Receipt Date: 20240326
  Transmission Date: 20240410
  Serious: Yes (Hospitalization, Other)
  Sender: FDA-Public Use
  Company Number: None

PATIENT
  Age: 79 Year
  Sex: Male
  Weight: 89.4 kg

DRUGS (16)
  1. TECVAYLI [Suspect]
     Active Substance: TECLISTAMAB-CQYV
     Indication: Plasma cell myeloma
     Dosage: CYCLE-1
     Route: 065
     Dates: start: 20230724
  2. TECVAYLI [Suspect]
     Active Substance: TECLISTAMAB-CQYV
     Dosage: C6J22
     Route: 065
     Dates: start: 20240110, end: 20240110
  3. CLAIRYG [Suspect]
     Active Substance: HUMAN IMMUNOGLOBULIN G
     Indication: Hypogammaglobulinaemia
     Route: 042
     Dates: start: 20230814
  4. CLAIRYG [Suspect]
     Active Substance: HUMAN IMMUNOGLOBULIN G
     Dosage: 10 G + 20 G, CYCLE-6 DAY-22
     Route: 042
     Dates: start: 20240110, end: 20240110
  5. CLAIRYG [Suspect]
     Active Substance: HUMAN IMMUNOGLOBULIN G
     Dosage: 10 G + 20 G
     Route: 042
     Dates: start: 20240131, end: 20240131
  6. APIXABAN [Concomitant]
     Active Substance: APIXABAN
     Dosage: 1-0-1
     Route: 065
  7. FEBUXOSTAT [Concomitant]
     Active Substance: FEBUXOSTAT
     Dosage: 1-0-0
     Route: 065
  8. SILODOSIN [Concomitant]
     Active Substance: SILODOSIN
     Dosage: 0-0-2
  9. VENLAFAXINE [Concomitant]
     Active Substance: VENLAFAXINE HYDROCHLORIDE
     Dosage: 1-0-0
     Route: 065
  10. LANSOPRAZOLE [Concomitant]
     Active Substance: LANSOPRAZOLE
     Dosage: 0-0-1
     Route: 065
  11. NICARDIPINE [Concomitant]
     Active Substance: NICARDIPINE
     Dosage: 1-0-1
     Route: 065
  12. ALPRAZOLAM [Concomitant]
     Active Substance: ALPRAZOLAM
     Route: 065
  13. HYDROXYZINE [Concomitant]
     Active Substance: HYDROXYZINE HYDROCHLORIDE
     Dosage: 0-0-1
     Route: 065
  14. VALACYCLOVIR HYDROCHLORIDE [Concomitant]
     Active Substance: VALACYCLOVIR HYDROCHLORIDE
     Dosage: 1-0-0
     Route: 065
  15. BACTRIM [Concomitant]
     Active Substance: SULFAMETHOXAZOLE\TRIMETHOPRIM
     Dosage: MONDAYS, WEDNESDAYS, FRIDAYS
     Route: 065
  16. PENICILLIN V [Concomitant]
     Active Substance: PENICILLIN V
     Dosage: MORNING AND EVENING
     Route: 065

REACTIONS (7)
  - Eczema [Not Recovered/Not Resolved]
  - Neutropenia [Recovered/Resolved]
  - General physical health deterioration [Unknown]
  - Diarrhoea [Unknown]
  - Decreased appetite [Unknown]
  - Hypercreatinaemia [Unknown]
  - Cough [Unknown]

NARRATIVE: CASE EVENT DATE: 20240115
